FAERS Safety Report 21503967 (Version 1)
Quarter: 2022Q4

REPORT INFORMATION
  Report Type: Spontaneous
  Country: US (occurrence: None)
  Receive Date: 20221025
  Receipt Date: 20221025
  Transmission Date: 20230113
  Serious: Yes (Death)
  Sender: FDA-Public Use
  Company Number: None

PATIENT
  Age: 64 Year
  Sex: Male
  Weight: 81.19 kg

DRUGS (8)
  1. DIPHENHYDRAMINE HYDROCHLORIDE [Suspect]
     Active Substance: DIPHENHYDRAMINE HYDROCHLORIDE
     Indication: Renal cancer
     Dosage: OTHER FREQUENCY : D1+15;?
     Route: 042
  2. DEXAMETHASONE SODIUM PHOSPHATE [Suspect]
     Active Substance: DEXAMETHASONE SODIUM PHOSPHATE
     Indication: Renal cancer
     Dosage: OTHER FREQUENCY : D1+15;?
     Route: 042
  3. ONDANSETRON [Concomitant]
     Active Substance: ONDANSETRON
  4. OPDIVO [Concomitant]
     Active Substance: NIVOLUMAB
  5. FAMOTIDINE [Concomitant]
     Active Substance: FAMOTIDINE
  6. SODIUM CHLORIDE [Concomitant]
     Active Substance: SODIUM CHLORIDE
  7. ZOLEDRONIC ACID [Concomitant]
     Active Substance: ZOLEDRONIC ACID
  8. SUNITINIB [Concomitant]
     Active Substance: SUNITINIB

REACTIONS (1)
  - Death [None]
